FAERS Safety Report 8357239-2 (Version None)
Quarter: 2012Q2

REPORT INFORMATION
  Report Type: 
  Country: None (occurrence: None)
  Receive Date: 20120510
  Receipt Date: 20120426
  Transmission Date: 20120825
  Serious: Yes (Other)
  Sender: FDA-Public Use
  Company Number: US-1191921

PATIENT
  Age: 78 Year
  Weight: 113.3993 kg

DRUGS (7)
  1. LIDOCAINE [Concomitant]
  2. BSS [Suspect]
     Indication: INTRAOCULAR LENS IMPLANT
     Dosage: (INTRAOCULAR)
     Route: 031
     Dates: start: 20120405, end: 20120405
  3. PHENYLEPHRINE HCL [Suspect]
     Indication: INTRAOCULAR LENS IMPLANT
     Dosage: (OPHTHALMIC)
     Route: 047
     Dates: start: 20120405, end: 20120405
  4. BETADINE [Suspect]
     Indication: INTRAOCULAR LENS IMPLANT
     Dosage: (OPHTHALMIC)
     Route: 047
     Dates: start: 20120405, end: 20120405
  5. VIGAMOX [Suspect]
     Indication: INTRAOCULAR LENS IMPLANT
     Dosage: (OPHTHALMIC)
     Route: 047
     Dates: start: 20120401, end: 20120413
  6. TROPICAMIDE 1  OPHTHALMIC SOLUTION [Suspect]
     Indication: INTRAOCULAR LENS IMPLANT
     Dosage: (OPHTHALMIC)
     Route: 047
     Dates: start: 20120405, end: 20120405
  7. PREDNISONE [Concomitant]

REACTIONS (1)
  - TOXIC ANTERIOR SEGMENT SYNDROME [None]
